FAERS Safety Report 18435364 (Version 2)
Quarter: 2020Q4

REPORT INFORMATION
  Report Type: Spontaneous
  Country: US (occurrence: US)
  Receive Date: 20201027
  Receipt Date: 20201202
  Transmission Date: 20210114
  Serious: Yes (Hospitalization)
  Sender: FDA-Public Use
  Company Number: US-ROCHE-2698755

PATIENT
  Age: 69 Year
  Sex: Female
  Weight: 75.82 kg

DRUGS (8)
  1. LOSARTAN. [Concomitant]
     Active Substance: LOSARTAN
     Indication: HYPERTENSION
     Route: 048
     Dates: start: 202001
  2. METFORMIN [Concomitant]
     Active Substance: METFORMIN HYDROCHLORIDE
     Indication: DIABETES MELLITUS
     Route: 048
     Dates: start: 202008
  3. INSULIN [Concomitant]
     Active Substance: INSULIN NOS
  4. ASPRIN [Concomitant]
     Active Substance: ASPIRIN
     Route: 048
     Dates: start: 201905
  5. ATORVASTATIN [Concomitant]
     Active Substance: ATORVASTATIN
     Indication: BLOOD CHOLESTEROL
     Route: 048
     Dates: start: 202001
  6. ACTEMRA [Suspect]
     Active Substance: TOCILIZUMAB
     Indication: GIANT CELL ARTERITIS
     Dosage: ONGOING YES; EVERY THURSDAY
     Route: 058
     Dates: start: 202001
  7. BIOTIN [Concomitant]
     Active Substance: BIOTIN
     Indication: ALOPECIA
     Route: 048
     Dates: start: 202006
  8. ACTEMRA [Suspect]
     Active Substance: TOCILIZUMAB

REACTIONS (9)
  - Fatigue [Recovered/Resolved]
  - Device issue [Unknown]
  - Hypotension [Recovered/Resolved]
  - Product dose omission issue [Unknown]
  - Illness [Unknown]
  - Blood glucose increased [Recovered/Resolved]
  - Exposure via skin contact [Unknown]
  - Alopecia [Recovered/Resolved]
  - Blood cholesterol [Unknown]

NARRATIVE: CASE EVENT DATE: 20200120
